FAERS Safety Report 13663348 (Version 1)
Quarter: 2017Q2

REPORT INFORMATION
  Report Type: Spontaneous
  Country: US (occurrence: US)
  Receive Date: 20170617
  Receipt Date: 20170617
  Transmission Date: 20170830
  Serious: Yes (Disabling)
  Sender: FDA-Public Use
  Company Number: None

PATIENT
  Age: 56 Year
  Sex: Female
  Weight: 86.4 kg

DRUGS (14)
  1. SERTRALINE [Concomitant]
     Active Substance: SERTRALINE HYDROCHLORIDE
  2. VITAMIN D [Concomitant]
     Active Substance: CHOLECALCIFEROL
  3. ASPIRIN. [Concomitant]
     Active Substance: ASPIRIN
  4. COQ10 [Concomitant]
     Active Substance: UBIDECARENONE
  5. LANTUS [Suspect]
     Active Substance: INSULIN GLARGINE
     Indication: TYPE 2 DIABETES MELLITUS
     Dosage: QUANTITY:38 UNITS;?
     Route: 058
     Dates: start: 20130801, end: 20170608
  6. IRON [Concomitant]
     Active Substance: IRON
  7. CLONODINE [Concomitant]
  8. CLOPIDIGRAL [Concomitant]
  9. ATORVASTATIN [Concomitant]
     Active Substance: ATORVASTATIN
  10. LEVEMIR [Suspect]
     Active Substance: INSULIN DETEMIR
     Indication: TYPE 2 DIABETES MELLITUS
     Dosage: QUANTITY:19 UNITS;?
     Route: 058
     Dates: start: 20170609, end: 20170609
  11. HCTZ/TRIAMTERENE [Concomitant]
  12. LISINOPRIL. [Concomitant]
     Active Substance: LISINOPRIL
  13. AMLODOPINE [Concomitant]
     Active Substance: AMLODIPINE BESYLATE
  14. ACETAMINOPHEN. [Concomitant]
     Active Substance: ACETAMINOPHEN

REACTIONS (9)
  - Weight decreased [None]
  - Loss of personal independence in daily activities [None]
  - Abasia [None]
  - Dyspepsia [None]
  - Anhedonia [None]
  - Therapy non-responder [None]
  - Feeling abnormal [None]
  - Disturbance in attention [None]
  - Vomiting [None]

NARRATIVE: CASE EVENT DATE: 20170616
